FAERS Safety Report 5081960-5 (Version None)
Quarter: 2006Q3

REPORT INFORMATION
  Report Type: 
  Country: None (occurrence: None)
  Receive Date: 20060811
  Receipt Date: 20060731
  Transmission Date: 20061208
  Serious: Yes (Other)
  Sender: FDA-Public Use
  Company Number: 2006JP002531

PATIENT
  Age: 50 Year
  Sex: Male
  Weight: 61 kg

DRUGS (6)
  1. TACROLIMUS CAPSULES (TACROLIMUS CAPSULES) [Suspect]
     Indication: RHEUMATOID ARTHRITIS
     Dosage: SEE IMAGE
     Route: 048
     Dates: start: 20050628, end: 20051003
  2. TACROLIMUS CAPSULES (TACROLIMUS CAPSULES) [Suspect]
     Indication: RHEUMATOID ARTHRITIS
     Dosage: SEE IMAGE
     Route: 048
     Dates: start: 20051004, end: 20051017
  3. TACROLIMUS CAPSULES (TACROLIMUS CAPSULES) [Suspect]
     Indication: RHEUMATOID ARTHRITIS
     Dosage: SEE IMAGE
     Route: 048
     Dates: start: 20051018, end: 20051114
  4. TACROLIMUS CAPSULES (TACROLIMUS CAPSULES) [Suspect]
     Indication: RHEUMATOID ARTHRITIS
     Dosage: SEE IMAGE
     Route: 048
     Dates: start: 20051115, end: 20051212
  5. TACROLIMUS CAPSULES (TACROLIMUS CAPSULES) [Suspect]
     Indication: RHEUMATOID ARTHRITIS
     Dosage: SEE IMAGE
     Route: 048
     Dates: start: 20051213
  6. PREDNISOLONE [Concomitant]

REACTIONS (1)
  - THROMBOPHLEBITIS [None]
